FAERS Safety Report 6337825-1 (Version None)
Quarter: 2009Q3

REPORT INFORMATION
  Report Type: 
  Country: None (occurrence: None)
  Receive Date: 20090902
  Receipt Date: 20090831
  Transmission Date: 20100115
  Serious: Yes (Congenital Anomaly, Other)
  Sender: FDA-Public Use
  Company Number: A0805063A

PATIENT
  Sex: Female
  Weight: 2.5 kg

DRUGS (4)
  1. KIVEXA [Suspect]
     Indication: DRUG USE FOR UNKNOWN INDICATION
  2. LAMIVUDINE [Suspect]
     Indication: DRUG USE FOR UNKNOWN INDICATION
  3. DIDANOSINE [Suspect]
     Indication: DRUG USE FOR UNKNOWN INDICATION
  4. FOLIC ACID [Concomitant]

REACTIONS (2)
  - ANOMALY OF EXTERNAL EAR CONGENITAL [None]
  - DRUG EXPOSURE DURING PREGNANCY [None]
